FAERS Safety Report 12099622 (Version 2)
Quarter: 2016Q1

REPORT INFORMATION
  Report Type: Spontaneous
  Country: US (occurrence: US)
  Receive Date: 20160222
  Receipt Date: 20160229
  Transmission Date: 20160526
  Serious: Yes (Other)
  Sender: FDA-Public Use
  Company Number: US-ACTAVIS-2016-03843

PATIENT
  Age: 39 Year
  Sex: Male

DRUGS (1)
  1. GEMCITABINE (ATLLC) [Suspect]
     Active Substance: GEMCITABINE HYDROCHLORIDE
     Indication: SARCOMA METASTATIC
     Dosage: UNK, CYCLICAL
     Route: 065

REACTIONS (1)
  - Pseudocellulitis [Recovered/Resolved]
